FAERS Safety Report 22007298 (Version 5)
Quarter: 2023Q2

REPORT INFORMATION
  Report Type: Report from Study
  Country: GB (occurrence: GB)
  Receive Date: 20230218
  Receipt Date: 20230527
  Transmission Date: 20230722
  Serious: Yes (Death, Hospitalization, Other)
  Sender: FDA-Public Use
  Company Number: GB-IPSEN Group, Research and Development-2022-04563

PATIENT
  Sex: Male

DRUGS (2)
  1. LANREOTIDE ACETATE [Suspect]
     Active Substance: LANREOTIDE ACETATE
     Indication: Acromegaly
     Dosage: 120 MG/ 0.5 ML
     Route: 058
  2. LANREOTIDE ACETATE [Suspect]
     Active Substance: LANREOTIDE ACETATE
     Indication: Neuroendocrine tumour

REACTIONS (12)
  - Death [Fatal]
  - Dyspnoea [Not Recovered/Not Resolved]
  - Pain [Recovered/Resolved]
  - Weight decreased [Not Recovered/Not Resolved]
  - Dyspnoea [Unknown]
  - Pneumothorax [Not Recovered/Not Resolved]
  - Pleural effusion [Unknown]
  - Diarrhoea [Unknown]
  - Skin ulcer [Unknown]
  - Off label use [Unknown]
  - Nasopharyngitis [Unknown]
  - COVID-19 [Recovered/Resolved]
